FAERS Safety Report 14768951 (Version 2)
Quarter: 2018Q2

REPORT INFORMATION
  Report Type: Not Available
  Country: PT (occurrence: PT)
  Receive Date: 20180417
  Receipt Date: 20180515
  Transmission Date: 20180711
  Serious: Yes (Disabling, Other)
  Sender: FDA-Public Use
  Company Number: PT-SYNTHON BV-NL01PV18_46842

PATIENT
  Age: 69 Year
  Sex: Male

DRUGS (6)
  1. FML [Concomitant]
     Active Substance: FLUOROMETHOLONE
     Dosage: UNK
  2. ELIQUIS [Concomitant]
     Active Substance: APIXABAN
     Dosage: 10 MG, UNK (1 PER DAY)
  3. METFORMINA BLUEFISH [Concomitant]
     Dosage: 2000 MG, UNK (1 PER DAY)
  4. ADALAT CRONO [Concomitant]
     Active Substance: NIFEDIPINE
     Dosage: 30 MG, UNK (1 PER DAY)
  5. LISINOPRIL/HYDROCHLORTHIAZID [Concomitant]
     Active Substance: HYDROCHLOROTHIAZIDE\LISINOPRIL
     Dosage: 1 DF, UNK (1 PER DAY)
  6. TAMSULOSINA ZENTIVA [Suspect]
     Active Substance: TAMSULOSIN
     Dosage: 0.4 MG, UNK (1 PER DAY)
     Route: 048
     Dates: start: 20180308, end: 20180312

REACTIONS (1)
  - Peripheral swelling [Recovered/Resolved]

NARRATIVE: CASE EVENT DATE: 20180309
